FAERS Safety Report 9650444 (Version 1)
Quarter: 2013Q4

REPORT INFORMATION
  Report Type: Spontaneous
  Country: US (occurrence: US)
  Receive Date: 20131028
  Receipt Date: 20131028
  Transmission Date: 20140711
  Serious: No
  Sender: FDA-Public Use
  Company Number: US-B.I. PHARMACEUTICALS,INC./RIDGEFIELD-2013-BI-33064BP

PATIENT
  Sex: Male

DRUGS (2)
  1. TRADJENTA [Suspect]
  2. LOVASTATIN [Concomitant]
     Indication: HYPERLIPIDAEMIA

REACTIONS (1)
  - Hepatic enzyme increased [Not Recovered/Not Resolved]
